FAERS Safety Report 23628875 (Version 4)
Quarter: 2024Q2

REPORT INFORMATION
  Report Type: Spontaneous
  Country: US (occurrence: US)
  Receive Date: 20240313
  Receipt Date: 20240613
  Transmission Date: 20240716
  Serious: Yes (Hospitalization, Other)
  Sender: FDA-Public Use
  Company Number: US-SUNOVION-2024SUN000176AA

PATIENT

DRUGS (2)
  1. RETHYMIC [Suspect]
     Active Substance: ALLOGENIC THYMOCYTE-DEPLETED THYMUS TISSUE-AGDC
     Indication: Multiple congenital abnormalities
     Dosage: UNK
     Route: 050
     Dates: start: 20240220, end: 20240220
  2. CYCLOSPORINE [Concomitant]
     Active Substance: CYCLOSPORINE
     Indication: Immunosuppressant drug therapy
     Dosage: UNK, BID
     Route: 048
     Dates: start: 20240214

REACTIONS (6)
  - Clostridium difficile infection [Unknown]
  - Pyrexia [Recovered/Resolved]
  - Blood phosphorus increased [Unknown]
  - Blood urea increased [Unknown]
  - Haemoglobin decreased [Unknown]
  - Haematological infection [Unknown]

NARRATIVE: CASE EVENT DATE: 20240321
